FAERS Safety Report 6534242-6 (Version None)
Quarter: 2010Q1

REPORT INFORMATION
  Report Type: 
  Country: None (occurrence: None)
  Receive Date: 20100112
  Receipt Date: 20100107
  Transmission Date: 20100710
  Serious: Yes (Death, Other)
  Sender: FDA-Public Use
  Company Number: PHEH2009US17959

PATIENT
  Age: 68 Year
  Sex: Female

DRUGS (2)
  1. GLEEVEC [Suspect]
     Indication: CHRONIC MYELOID LEUKAEMIA
     Dosage: 300 MG, QD
     Route: 048
     Dates: start: 20080826, end: 20090701
  2. GLEEVEC [Suspect]
     Route: 048

REACTIONS (4)
  - BLOOD COUNT ABNORMAL [None]
  - DEATH [None]
  - DRUG RESISTANCE [None]
  - MYELODYSPLASTIC SYNDROME [None]
